FAERS Safety Report 22011803 (Version 1)
Quarter: 2023Q1

REPORT INFORMATION
  Report Type: Report from Study
  Country: CN (occurrence: CN)
  Receive Date: 20230220
  Receipt Date: 20230220
  Transmission Date: 20230417
  Serious: Yes (Hospitalization)
  Sender: FDA-Public Use
  Company Number: CN-MYLANLABS-PV202200056340

PATIENT
  Age: 36 Year
  Sex: Female
  Weight: 52.5 kg

DRUGS (20)
  1. SILDENAFIL CITRATE [Suspect]
     Active Substance: SILDENAFIL CITRATE
     Indication: Pulmonary arterial hypertension
     Dosage: 20 MG, 3X/DAY
     Route: 048
     Dates: start: 20220610
  2. HYDROXYCHLOROQUINE SULFATE [Concomitant]
     Active Substance: HYDROXYCHLOROQUINE SULFATE
     Indication: Connective tissue disorder
     Dosage: UNK
     Route: 048
     Dates: start: 2018
  3. CYCLOSPORINE [Concomitant]
     Active Substance: CYCLOSPORINE
     Indication: Connective tissue disorder
     Dosage: UNK
     Route: 048
     Dates: start: 2018
  4. CALCITRIOL [Concomitant]
     Active Substance: CALCITRIOL
     Indication: Connective tissue disorder
     Dosage: UNK
     Route: 048
     Dates: start: 2013
  5. PREDNISONE ACETATE [Concomitant]
     Active Substance: PREDNISONE ACETATE
     Indication: Connective tissue disorder
     Dosage: UNK
     Route: 048
     Dates: start: 2018
  6. CALCIUM CARBONATE\CHOLECALCIFEROL [Concomitant]
     Active Substance: CALCIUM CARBONATE\CHOLECALCIFEROL
     Indication: Connective tissue disorder
     Dosage: UNK
     Route: 048
     Dates: start: 20220727
  7. COMPOUND CYCLOPHOSPHAMIDE [Concomitant]
     Indication: Connective tissue disorder
     Dosage: UNK
     Route: 048
     Dates: start: 20220727
  8. AMBRISENTAN [Concomitant]
     Active Substance: AMBRISENTAN
     Indication: Pulmonary arterial hypertension
     Dosage: UNK
     Route: 048
     Dates: start: 202205
  9. DIGOXIN [Concomitant]
     Active Substance: DIGOXIN
     Indication: Pulmonary arterial hypertension
     Dosage: UNK
     Route: 048
     Dates: start: 2018
  10. SPIRONOLACTONE [Concomitant]
     Active Substance: SPIRONOLACTONE
     Indication: Pulmonary arterial hypertension
     Dosage: UNK
     Route: 048
     Dates: start: 2018
  11. RIVAROXABAN [Concomitant]
     Active Substance: RIVAROXABAN
     Indication: Pulmonary arterial hypertension
     Dosage: UNK
     Route: 048
     Dates: start: 2018
  12. FUROSEMIDE [Concomitant]
     Active Substance: FUROSEMIDE
     Indication: Pulmonary arterial hypertension
     Dosage: UNK
     Route: 048
     Dates: start: 20220727
  13. LEUCOGEN [Concomitant]
     Active Substance: LEUCOGEN
     Indication: Prophylaxis
     Dosage: UNK
     Route: 048
     Dates: start: 2018
  14. TERBINAFINE HYDROCHLORIDE [Concomitant]
     Active Substance: TERBINAFINE HYDROCHLORIDE
     Indication: Skin papilloma
     Dosage: UNK
     Route: 048
     Dates: start: 20220414
  15. TERBINAFINE HYDROCHLORIDE [Concomitant]
     Active Substance: TERBINAFINE HYDROCHLORIDE
     Indication: Onychomycosis
  16. ACITRETIN [Concomitant]
     Active Substance: ACITRETIN
     Indication: Skin papilloma
     Dosage: UNK
     Route: 048
     Dates: start: 20220414
  17. ACITRETIN [Concomitant]
     Active Substance: ACITRETIN
     Indication: Onychomycosis
  18. TRETINOIN [Concomitant]
     Active Substance: TRETINOIN
     Indication: Skin papilloma
     Dosage: UNK, EXTERNAL COATING
     Route: 065
     Dates: start: 20220414
  19. TRETINOIN [Concomitant]
     Active Substance: TRETINOIN
     Indication: Onychomycosis
  20. RABEPRAZOLE SODIUM [Concomitant]
     Active Substance: RABEPRAZOLE SODIUM
     Indication: Prophylaxis
     Dosage: UNK, ENTERIC-COATED TABLETS
     Route: 048
     Dates: start: 20220727

REACTIONS (1)
  - Systemic lupus erythematosus [Recovered/Resolved]

NARRATIVE: CASE EVENT DATE: 20220727
